FAERS Safety Report 21789055 (Version 1)
Quarter: 2022Q4

REPORT INFORMATION
  Report Type: Spontaneous
  Country: US (occurrence: None)
  Receive Date: 20221227
  Receipt Date: 20221227
  Transmission Date: 20230113
  Serious: No
  Sender: FDA-Public Use
  Company Number: None

PATIENT
  Sex: Female

DRUGS (1)
  1. TALZENNA [Suspect]
     Active Substance: TALAZOPARIB TOSYLATE
     Dosage: FREQUENCY : DAILY;?
     Route: 048
     Dates: start: 20221201

REACTIONS (4)
  - Stomatitis [None]
  - Nonspecific reaction [None]
  - Decreased appetite [None]
  - Therapy interrupted [None]
